FAERS Safety Report 6274010-6 (Version None)
Quarter: 2009Q3

REPORT INFORMATION
  Report Type: 
  Country: None (occurrence: None)
  Receive Date: 20090720
  Receipt Date: 20090708
  Transmission Date: 20100115
  Serious: Yes (Death)
  Sender: FDA-Public Use
  Company Number: US-PFIZER INC-2009230159

PATIENT
  Sex: Male

DRUGS (3)
  1. SUTENT [Suspect]
     Indication: RENAL CELL CARCINOMA
     Dosage: 50 MG, 4/WEEKS ON 2/WEEKS OFF
     Dates: start: 20090312, end: 20090601
  2. DIDERAL [Concomitant]
  3. ASPIRIN [Concomitant]

REACTIONS (1)
  - DEATH [None]
